FAERS Safety Report 8439400-1 (Version None)
Quarter: 2012Q2

REPORT INFORMATION
  Report Type: 
  Country: None (occurrence: None)
  Receive Date: 20120615
  Receipt Date: 20120613
  Transmission Date: 20120825
  Serious: Yes (Life-Threatening, Other)
  Sender: FDA-Public Use
  Company Number: PHHY2012CN050807

PATIENT
  Age: 61 Year
  Sex: Female
  Weight: 55 kg

DRUGS (2)
  1. ZOLEDRONOC ACID [Suspect]
     Indication: OSTEOPOROSIS
     Dosage: 5 MG YEARLY
     Route: 042
     Dates: start: 20120612
  2. CELECOXIB [Concomitant]
     Indication: PAIN
     Dosage: 200 MG, QD
     Route: 048
     Dates: start: 20120612, end: 20120612

REACTIONS (8)
  - CARDIO-RESPIRATORY ARREST [None]
  - URINARY INCONTINENCE [None]
  - CHEST PAIN [None]
  - BLOOD PRESSURE DECREASED [None]
  - DYSPNOEA [None]
  - FAECAL INCONTINENCE [None]
  - BRAIN DEATH [None]
  - FALL [None]
